FAERS Safety Report 9659474 (Version 2)
Quarter: 2013Q4

REPORT INFORMATION
  Report Type: Spontaneous
  Country: US (occurrence: US)
  Receive Date: 20131031
  Receipt Date: 20131108
  Transmission Date: 20140711
  Serious: Yes (Hospitalization)
  Sender: FDA-Public Use
  Company Number: US-SA-2013SA110541

PATIENT
  Age: 66 Year
  Sex: Female

DRUGS (2)
  1. LANTUS [Suspect]
     Indication: TYPE 2 DIABETES MELLITUS
     Dosage: DOSE: 20-38 UNITS IN MORNING AND 38 UNITS IN EVENING
     Route: 058
  2. LEVEMIR [Concomitant]

REACTIONS (11)
  - Osteomyelitis [Recovered/Resolved]
  - Wound [Unknown]
  - Skin erosion [Unknown]
  - Nail disorder [Recovered/Resolved]
  - Weight decreased [Recovered/Resolved]
  - Influenza [Unknown]
  - Visual impairment [Unknown]
  - Blood glucose increased [Recovered/Resolved]
  - Blood glucose decreased [Unknown]
  - Malaise [Unknown]
  - Drug dose omission [Unknown]
